FAERS Safety Report 8463730-0 (Version None)
Quarter: 2012Q2

REPORT INFORMATION
  Report Type: 
  Country: None (occurrence: None)
  Receive Date: 20120625
  Receipt Date: 20120613
  Transmission Date: 20120825
  Serious: Yes (Death, Hospitalization, Other)
  Sender: FDA-Public Use
  Company Number: JP-BRISTOL-MYERS SQUIBB COMPANY-16699688

PATIENT
  Age: 49 Year
  Sex: Female

DRUGS (12)
  1. MITOMYCIN [Suspect]
     Indication: PERITONEAL CARCINOMA METASTATIC
     Dosage: INJ
  2. NEDAPLATIN [Suspect]
     Indication: PERITONEAL CARCINOMA METASTATIC
     Dosage: ALSO 60MG/M2,12MG/M2(DAYS1-15),120MG/M2
     Route: 033
  3. IRINOTECAN HCL [Suspect]
     Indication: PERITONEAL CARCINOMA METASTATIC
     Dosage: ON DAY 1, 15
  4. CYTARABINE [Suspect]
     Indication: PERITONEAL CARCINOMA METASTATIC
     Route: 037
  5. DOXIL [Suspect]
     Indication: PERITONEAL CARCINOMA METASTATIC
  6. EPIRUBICIN HYDROCHLORIDE [Suspect]
     Indication: PERITONEAL CARCINOMA METASTATIC
     Dosage: DAY1
  7. DOCETAXEL [Suspect]
     Indication: PERITONEAL CARCINOMA METASTATIC
  8. METHOTREXATE [Suspect]
     Indication: PERITONEAL CARCINOMA METASTATIC
     Route: 037
  9. PREDNISOLONE [Suspect]
     Indication: PERITONEAL CARCINOMA METASTATIC
     Route: 037
  10. CARBOPLATIN [Suspect]
     Indication: PERITONEAL CARCINOMA METASTATIC
     Dosage: 1DF=AUC5 ALSO AUC4
  11. PACLITAXEL [Suspect]
     Indication: PERITONEAL CARCINOMA METASTATIC
  12. CYCLOPHOSPHAMIDE [Suspect]
     Indication: PERITONEAL CARCINOMA METASTATIC
     Dosage: CYCLOPHOSPHAMIDE HYDRATE DAY1 ALSO 600MG/M2

REACTIONS (6)
  - RASH [None]
  - NEOPLASM MALIGNANT [None]
  - GENERALISED OEDEMA [None]
  - PANCYTOPENIA [None]
  - NEUROLOGICAL SYMPTOM [None]
  - SWELLING [None]
